FAERS Safety Report 8575896-2 (Version None)
Quarter: 2012Q3

REPORT INFORMATION
  Report Type: 
  Country: None (occurrence: None)
  Receive Date: 20120807
  Receipt Date: 20120726
  Transmission Date: 20120928
  Serious: Yes (Hospitalization)
  Sender: FDA-Public Use
  Company Number: US-BAYER-2011-109994

PATIENT
  Age: 31 Year
  Sex: Female
  Weight: 117.91 kg

DRUGS (37)
  1. YAZ [Suspect]
  2. TYLENOL [Concomitant]
     Indication: HEADACHE
     Dosage: 2 TABLET
  3. BYSTOLIC [Concomitant]
     Dosage: 10 MG, QD
     Dates: start: 20090727
  4. METHYLPREDNISOLONE [Concomitant]
  5. ZOFRAN [Concomitant]
     Dosage: 4 MG, UNK
     Route: 048
  6. DROSPIRENONE AND ETHINYL ESTRADIOL [Suspect]
     Indication: ACNE
     Dosage: UNK
     Route: 048
     Dates: start: 20090731, end: 20091101
  7. ATENOLOL [Concomitant]
     Dosage: 50 MG, DAILY
     Dates: start: 20091017
  8. MAVIK [Concomitant]
     Dosage: 2 MG DAILY
  9. NORCO [Concomitant]
     Indication: PAIN
     Dosage: 5/325 1 -2 Q 4 HOURS PRN
  10. PROZAC [Concomitant]
  11. DROSPIRENONE AND ETHINYL ESTRADIOL [Suspect]
     Indication: PREMENSTRUAL SYNDROME
  12. KEFLEX [Concomitant]
     Dosage: 500 MG, BID
     Dates: start: 20090724
  13. LEVAQUIN [Concomitant]
     Dosage: 750 MG, UNK
     Dates: start: 20090924
  14. TRANDOLAPRIL [Concomitant]
     Dosage: 2 MG, UNK
     Dates: start: 20091114
  15. PERCOCET [Concomitant]
     Dosage: 5/325, PRN
     Dates: start: 20091126
  16. METOCLOPRAMIDE [Concomitant]
     Dosage: 10 MG
  17. HYDROCODONE BITARTRATE [Concomitant]
  18. YAZ [Suspect]
     Indication: PREMENSTRUAL SYNDROME
  19. LORTAB [Concomitant]
     Dosage: 5/500 TABLET, Q6WK
     Dates: start: 20090724
  20. DOXYCYCLINE HCL [Concomitant]
     Dosage: 100 MG, BID
     Dates: start: 20090727
  21. MULTI-VITAMINS [Concomitant]
  22. MORPHINE [Concomitant]
     Dosage: 120 MG, BID
     Dates: start: 20091126
  23. ALBUTEROL [Concomitant]
     Indication: ASTHMA
     Dosage: UNK
     Dates: start: 20090727
  24. DROSPIRENONE AND ETHINYL ESTRADIOL [Suspect]
  25. XALATAN [Concomitant]
     Dosage: UNK
     Dates: start: 20090727
  26. LEVAQUIN [Concomitant]
     Dosage: 750 MG, UNK
     Dates: start: 20090831
  27. TRANDOLAPRIL [Concomitant]
     Dosage: 2 MG, UNK
     Dates: start: 20091013
  28. PROMETHAZINE HYDROCHLORIDE [Concomitant]
     Dosage: 25 MG, EVERY 4 TO 6 HRS PRN
     Route: 054
  29. COLACE [Concomitant]
     Dosage: 1 TABLET DAILY
     Dates: start: 20091126
  30. PROAIR HFA [Concomitant]
     Dosage: 90 MCG
  31. CHANTIX [Concomitant]
     Dosage: 0.5 MG, DAILY
     Route: 048
     Dates: start: 20090922
  32. REGLAN [Concomitant]
     Indication: NAUSEA
     Dosage: 10 MG, 1 TABLET, Q6WK PRN
     Dates: start: 20090727
  33. MULTI-VITAMINS [Concomitant]
     Dosage: UNK
     Dates: start: 20090727
  34. YAZ [Suspect]
     Indication: ACNE
     Dosage: UNK
     Dates: start: 20090731, end: 20091101
  35. CHANTIX [Concomitant]
     Dosage: 0.5 MG DAILY
     Route: 048
     Dates: start: 20090727
  36. COMPAZINE [Concomitant]
     Dosage: UNK
     Dates: start: 20091017
  37. ESOMEPRAZOLE [Concomitant]
     Dosage: 40 MG, QD
     Route: 048
     Dates: start: 20091122

REACTIONS (19)
  - CHOLELITHIASIS [None]
  - PAIN [None]
  - ASTHENIA [None]
  - DEEP VEIN THROMBOSIS [None]
  - PULMONARY EMBOLISM [None]
  - INJURY [None]
  - THROMBOTIC STROKE [None]
  - GENERAL PHYSICAL HEALTH DETERIORATION [None]
  - STRESS [None]
  - FEAR OF PREGNANCY [None]
  - TRANSVERSE SINUS THROMBOSIS [None]
  - EMOTIONAL DISTRESS [None]
  - ANHEDONIA [None]
  - PAIN IN EXTREMITY [None]
  - NIGHTMARE [None]
  - ANXIETY [None]
  - HAEMOPTYSIS [None]
  - CHEST PAIN [None]
  - FEAR OF DEATH [None]
